FAERS Safety Report 19299247 (Version 2)
Quarter: 2021Q3

REPORT INFORMATION
  Report Type: Report from Study
  Country: None (occurrence: US)
  Receive Date: 20210525
  Receipt Date: 20210714
  Transmission Date: 20211014
  Serious: Yes (Hospitalization)
  Sender: FDA-Public Use
  Company Number: US-ABBVIE-21K-163-3904844-00

PATIENT
  Sex: Female
  Weight: 109 kg

DRUGS (7)
  1. HUMIRA [Suspect]
     Active Substance: ADALIMUMAB
     Route: 058
     Dates: start: 2021
  2. FOLIC ACID. [Concomitant]
     Active Substance: FOLIC ACID
     Indication: PRODUCT USED FOR UNKNOWN INDICATION
  3. HUMIRA [Suspect]
     Active Substance: ADALIMUMAB
     Indication: ANKYLOSING SPONDYLITIS
     Route: 058
     Dates: start: 202101, end: 202104
  4. VITAMIN B12 [Concomitant]
     Active Substance: CYANOCOBALAMIN
     Indication: SUPPLEMENTATION THERAPY
  5. CELEBREX [Concomitant]
     Active Substance: CELECOXIB
     Indication: PAIN
  6. METHOTREXATE. [Concomitant]
     Active Substance: METHOTREXATE
     Indication: PRODUCT USED FOR UNKNOWN INDICATION
     Dosage: ONGOING
     Route: 065
  7. VITAMIN D [Concomitant]
     Active Substance: VITAMIN D NOS
     Indication: SUPPLEMENTATION THERAPY

REACTIONS (14)
  - C-reactive protein increased [Unknown]
  - Back pain [Unknown]
  - Overweight [Unknown]
  - Fatigue [Recovered/Resolved]
  - Arthralgia [Recovering/Resolving]
  - Injection site erythema [Recovered/Resolved]
  - Joint swelling [Recovering/Resolving]
  - Injection site pruritus [Recovered/Resolved]
  - Pain [Recovering/Resolving]
  - Mobility decreased [Recovering/Resolving]
  - Joint range of motion decreased [Recovering/Resolving]
  - Musculoskeletal stiffness [Recovered/Resolved]
  - Pain in extremity [Not Recovered/Not Resolved]
  - Injection site pruritus [Not Recovered/Not Resolved]

NARRATIVE: CASE EVENT DATE: 2021
